FAERS Safety Report 7740640-5 (Version None)
Quarter: 2011Q3

REPORT INFORMATION
  Report Type: 
  Country: None (occurrence: None)
  Receive Date: 20110909
  Receipt Date: 20110829
  Transmission Date: 20111222
  Serious: No
  Sender: FDA-Public Use
  Company Number: JP-JNJFOC-20110902652

PATIENT
  Sex: Female

DRUGS (7)
  1. FENTANYL CITRATE [Suspect]
     Route: 065
     Dates: start: 20100611, end: 20100806
  2. PROCHLORPERAZINE [Concomitant]
     Indication: PROPHYLAXIS
     Route: 048
     Dates: start: 20100514
  3. UNKNOWN MEDICATION [Concomitant]
     Indication: PROCEDURAL PAIN
     Route: 048
  4. FENTANYL CITRATE [Suspect]
     Indication: PROCEDURAL PAIN
     Route: 065
     Dates: start: 20100514
  5. TAMBOCOR [Concomitant]
     Indication: PROCEDURAL PAIN
     Route: 048
     Dates: end: 20100709
  6. MAGNESIUM OXIDE [Concomitant]
     Indication: PROPHYLAXIS
     Route: 048
     Dates: start: 20100514
  7. PURSENNID [Concomitant]
     Indication: PROPHYLAXIS
     Route: 048
     Dates: start: 20100514

REACTIONS (4)
  - NAUSEA [None]
  - VOMITING [None]
  - WRONG TECHNIQUE IN DRUG USAGE PROCESS [None]
  - DRUG INTOLERANCE [None]
